FAERS Safety Report 24764980 (Version 1)
Quarter: 2024Q4

REPORT INFORMATION
  Report Type: Spontaneous
  Country: US (occurrence: None)
  Receive Date: 20241219
  Receipt Date: 20241219
  Transmission Date: 20250115
  Serious: Yes (Death, Life-Threatening)
  Sender: Public
  Company Number: None

PATIENT
  Age: 87 Year
  Sex: Male
  Weight: 92 kg

DRUGS (1)
  1. APIXABAN [Suspect]
     Active Substance: APIXABAN
     Dosage: FREQUENCY : TWICE A DAY;?
     Route: 048

REACTIONS (10)
  - Acute respiratory failure [None]
  - Treatment failure [None]
  - Fall [None]
  - Pulmonary mass [None]
  - Carotid artery thrombosis [None]
  - Cerebral infarction [None]
  - COVID-19 pneumonia [None]
  - Pneumonia bacterial [None]
  - Hypercoagulation [None]
  - Aortic aneurysm [None]

NARRATIVE: CASE EVENT DATE: 20240831
